FAERS Safety Report 8301614-9 (Version None)
Quarter: 2012Q2

REPORT INFORMATION
  Report Type: 
  Country: None (occurrence: None)
  Receive Date: 20120420
  Receipt Date: 20120416
  Transmission Date: 20120825
  Serious: Yes (Death, Hospitalization)
  Sender: FDA-Public Use
  Company Number: US-ELI_LILLY_AND_COMPANY-US201203006325

PATIENT
  Sex: Male

DRUGS (2)
  1. ADCIRCA [Suspect]
     Indication: PULMONARY HYPERTENSION
     Dosage: 40 MG, QD
     Dates: start: 20101201
  2. OXYGEN [Concomitant]

REACTIONS (4)
  - VARICOSE VEIN RUPTURED [None]
  - PHARYNGEAL HAEMORRHAGE [None]
  - DYSPNOEA [None]
  - DEATH [None]
